FAERS Safety Report 7998235-4 (Version None)
Quarter: 2011Q4

REPORT INFORMATION
  Report Type: 
  Country: None (occurrence: None)
  Receive Date: 20111221
  Receipt Date: 20110506
  Transmission Date: 20120403
  Serious: No
  Sender: FDA-Public Use
  Company Number: US-GLAXOSMITHKLINE-A0926391A

PATIENT
  Age: 49 Year
  Sex: Female

DRUGS (4)
  1. MULTI-VITAMIN [Concomitant]
  2. SIMVASTATIN [Concomitant]
  3. SYNTHROID [Concomitant]
  4. LOVAZA [Suspect]
     Indication: BLOOD TRIGLYCERIDES INCREASED
     Dosage: 1G TWICE PER DAY
     Route: 048
     Dates: start: 20100901

REACTIONS (1)
  - RASH [None]
